FAERS Safety Report 14352433 (Version 2)
Quarter: 2018Q1

REPORT INFORMATION
  Report Type: Spontaneous
  Country: US (occurrence: US)
  Receive Date: 20180104
  Receipt Date: 20180320
  Transmission Date: 20180509
  Serious: No
  Sender: FDA-Public Use
  Company Number: US-AVEDRO-AVE-2017-0350-AE

PATIENT
  Sex: Female

DRUGS (2)
  1. PHOTREXA VISCOUS [Suspect]
     Active Substance: RIBOFLAVIN 5^-PHOSPHATE SODIUM
     Indication: PRODUCT USED FOR UNKNOWN INDICATION
     Route: 047
     Dates: start: 201712, end: 201712
  2. ICRS SURGERY [Suspect]
     Active Substance: DEVICE
     Indication: PRODUCT USED FOR UNKNOWN INDICATION
     Route: 047
     Dates: start: 201712, end: 201712

REACTIONS (3)
  - Corneal infiltrates [Recovering/Resolving]
  - Corneal opacity [Unknown]
  - Corneal thinning [Not Recovered/Not Resolved]

NARRATIVE: CASE EVENT DATE: 201712
